FAERS Safety Report 8003066-5 (Version None)
Quarter: 2011Q4

REPORT INFORMATION
  Report Type: 
  Country: None (occurrence: None)
  Receive Date: 20111222
  Receipt Date: 20111213
  Transmission Date: 20120403
  Serious: Yes (Hospitalization)
  Sender: FDA-Public Use
  Company Number: US-ABBOTT-11P-163-0883461-00

PATIENT
  Sex: Female

DRUGS (2)
  1. NASACORT [Concomitant]
     Indication: PRODUCT USED FOR UNKNOWN INDICATION
  2. HUMIRA [Suspect]
     Indication: CROHN'S DISEASE
     Route: 058

REACTIONS (4)
  - MUSCULOSKELETAL PAIN [None]
  - SENSORY DISTURBANCE [None]
  - PAIN [None]
  - DYSPNOEA [None]
